FAERS Safety Report 6969892-6 (Version None)
Quarter: 2010Q3

REPORT INFORMATION
  Report Type: 
  Country: None (occurrence: None)
  Receive Date: 20100908
  Receipt Date: 20100826
  Transmission Date: 20110219
  Serious: No
  Sender: FDA-Public Use
  Company Number: US-B.I. PHARMACEUTICALS,INC./RIDGEFIELD-2010-BP-09684BP

PATIENT
  Age: 58 Year
  Sex: Female

DRUGS (3)
  1. ZANTAC 150 [Suspect]
     Indication: HYPERSENSITIVITY
     Dosage: 300 MG
     Route: 048
     Dates: start: 20100825
  2. BENADRYL [Suspect]
     Indication: HYPERSENSITIVITY
     Dosage: 25 MG
     Route: 048
     Dates: start: 20100825
  3. PREDNISONE [Concomitant]
     Indication: HYPERSENSITIVITY
     Dosage: 60 MG
     Route: 048
     Dates: start: 20100825

REACTIONS (2)
  - LIP SWELLING [None]
  - SWELLING FACE [None]
